FAERS Safety Report 8800020 (Version 2)
Quarter: 2012Q4

REPORT INFORMATION
  Report Type: 
  Country: JP (occurrence: JP)
  Receive Date: 20120921
  Receipt Date: 20120925
  Transmission Date: 20130627
  Serious: Yes (Other)
  Sender: FDA-Public Use
  Company Number: PHHY2012JP082108

PATIENT

DRUGS (3)
  1. AMLODIPINE BESYLATE [Suspect]
     Dosage: 200 mg, UNK
     Route: 048
  2. AMLODIPINE BESYLATE [Suspect]
     Dosage: 5 mg, UNK
  3. CLARITHROMYCIN SANDOZ [Concomitant]
     Dosage: 200 mg, UNK
     Route: 048

REACTIONS (3)
  - Road traffic accident [Unknown]
  - Amnesia [Unknown]
  - Depressed level of consciousness [Unknown]
